FAERS Safety Report 12915655 (Version 1)
Quarter: 2016Q4

REPORT INFORMATION
  Report Type: Report from Study
  Country: CA (occurrence: CA)
  Receive Date: 20161106
  Receipt Date: 20161106
  Transmission Date: 20170207
  Serious: Yes (Hospitalization, Other)
  Sender: FDA-Public Use
  Company Number: CA-AMGEN-CANSL2016152950

PATIENT
  Sex: Female

DRUGS (3)
  1. NAPROXEN. [Concomitant]
     Active Substance: NAPROXEN
     Dosage: 500 MG, BID
  2. PARIET [Concomitant]
     Active Substance: RABEPRAZOLE SODIUM
     Dosage: 20 MG, QD
  3. ENBREL [Suspect]
     Active Substance: ETANERCEPT
     Indication: PSORIATIC ARTHROPATHY
     Dosage: 50 MG, QWK
     Route: 058
     Dates: start: 20120710

REACTIONS (14)
  - Lumbar spinal stenosis [Unknown]
  - Psoriasis [Unknown]
  - Investigation abnormal [Unknown]
  - Musculoskeletal stiffness [Unknown]
  - Arthralgia [Unknown]
  - Joint range of motion decreased [Unknown]
  - Epicondylitis [Unknown]
  - Blood potassium abnormal [Unknown]
  - Oxygen supplementation [Unknown]
  - Fatigue [Unknown]
  - Joint swelling [Unknown]
  - Intervertebral disc disorder [Unknown]
  - Pain [Unknown]
  - Tendonitis [Unknown]

NARRATIVE: CASE EVENT DATE: 20160915
